FAERS Safety Report 8990181 (Version 1)
Quarter: 2012Q4

REPORT INFORMATION
  Report Type: 
  Country: DE (occurrence: DE)
  Receive Date: 20121228
  Receipt Date: 20121228
  Transmission Date: 20130627
  Serious: Yes (Death, Life-Threatening, Hospitalization, Congenital Anomaly)
  Sender: FDA-Public Use
  Company Number: DE-TEVA-376383GER

PATIENT
  Age: 0 Year
  Sex: Male
  Weight: 3.63 kg

DRUGS (2)
  1. FLUOXETINE [Suspect]
     Route: 064
     Dates: start: 20111008, end: 20120627
  2. FEMIBION [Concomitant]
     Route: 064

REACTIONS (1)
  - Double outlet right ventricle [Fatal]
